FAERS Safety Report 13064516 (Version 1)
Quarter: 2016Q4

REPORT INFORMATION
  Report Type: Spontaneous
  Country: JP (occurrence: JP)
  Receive Date: 20161227
  Receipt Date: 20161227
  Transmission Date: 20170207
  Serious: Yes (Hospitalization)
  Sender: FDA-Public Use
  Company Number: JP-BAYER-2016-178444

PATIENT
  Age: 72 Year
  Sex: Male

DRUGS (7)
  1. BENIDIPINE HYDROCHLORIDE [Concomitant]
     Active Substance: BENIDIPINE HYDROCHLORIDE
     Indication: PROPHYLAXIS
     Dosage: DAILY DOSE 4 MG
     Route: 048
     Dates: start: 201301
  2. MAGNESIUM OXIDE. [Concomitant]
     Active Substance: MAGNESIUM OXIDE
     Dosage: 0.5 G, PRN
     Route: 048
     Dates: start: 201302
  3. BUFFERIN A [Concomitant]
     Dosage: DAILY DOSE 1 DF
     Route: 048
     Dates: start: 201301
  4. STIVARGA [Suspect]
     Active Substance: REGORAFENIB
     Dosage: 160 MG, QD
     Route: 048
     Dates: start: 20160809, end: 20160906
  5. SENNOSIDE [Concomitant]
     Active Substance: SENNOSIDES
     Dosage: 24 MG, PRN
     Route: 048
     Dates: start: 201309
  6. NICORANDIL [Concomitant]
     Active Substance: NICORANDIL
     Dosage: DAILY DOSE 10 MG
     Dates: start: 201301
  7. ATORVASTATIN [Concomitant]
     Active Substance: ATORVASTATIN
     Dosage: DAILY DOSE 10 MG
     Route: 048
     Dates: start: 201301

REACTIONS (6)
  - Blood alkaline phosphatase increased [Recovered/Resolved]
  - Cough [Unknown]
  - Transaminases increased [Recovered/Resolved]
  - Blood bilirubin increased [Recovered/Resolved]
  - Ascites [None]
  - Pyrexia [Unknown]

NARRATIVE: CASE EVENT DATE: 20160906
